FAERS Safety Report 9774664 (Version 1)
Quarter: 2013Q4

REPORT INFORMATION
  Report Type: Spontaneous
  Country: US (occurrence: US)
  Receive Date: 20131220
  Receipt Date: 20131220
  Transmission Date: 20140711
  Serious: No
  Sender: FDA-Public Use
  Company Number: US-009507513-1312USA004913

PATIENT
  Age: 83 Year
  Sex: Female

DRUGS (4)
  1. SINGULAIR [Suspect]
     Dosage: UNKNOWN
     Route: 048
  2. PROVENTIL [Suspect]
     Route: 055
  3. ADVAIR [Concomitant]
  4. ASPIRIN [Concomitant]

REACTIONS (6)
  - Pain [Unknown]
  - Drug ineffective [Unknown]
  - Somnolence [Unknown]
  - Secretion discharge [Unknown]
  - Cough [Unknown]
  - Gait disturbance [Unknown]
